FAERS Safety Report 9163142 (Version 1)
Quarter: 2013Q1

REPORT INFORMATION
  Report Type: Spontaneous
  Country: DK (occurrence: None)
  Receive Date: 20130227
  Receipt Date: 20130227
  Transmission Date: 20140127
  Serious: Yes (Hospitalization)
  Sender: FDA-Public Use
  Company Number: 2013MA001339

PATIENT
  Sex: Male

DRUGS (7)
  1. ACYCLOVIR [Suspect]
     Indication: PROPHYLAXIS
  2. PHENYTOIN(CON.) [Concomitant]
  3. LANSOPRAZOLE(CON.) [Concomitant]
  4. PREDNISOLONE(CON.) [Concomitant]
  5. BETAHISTINE(CON.) [Concomitant]
  6. LOSARTAN(CON.) [Concomitant]
  7. DIGOXIN(CON.) [Concomitant]

REACTIONS (3)
  - Subdural haematoma [None]
  - Alanine aminotransferase increased [None]
  - Gamma-glutamyltransferase increased [None]
